FAERS Safety Report 19706722 (Version 1)
Quarter: 2021Q3

REPORT INFORMATION
  Report Type: Spontaneous
  Country: ES (occurrence: ES)
  Receive Date: 20210817
  Receipt Date: 20210817
  Transmission Date: 20211014
  Serious: Yes (Other)
  Sender: FDA-Public Use
  Company Number: NVSC2021ES065762

PATIENT
  Age: 44 Year
  Sex: Male
  Weight: 91.4 kg

DRUGS (13)
  1. GLASDEGIB [Suspect]
     Active Substance: GLASDEGIB
     Dosage: 50 MG, QD
     Route: 048
     Dates: start: 20190207, end: 20190226
  2. TEICOPLANINE [Concomitant]
     Active Substance: TEICOPLANIN
     Indication: BACTERAEMIA
     Dosage: UNK
     Route: 065
     Dates: start: 20190212, end: 20190220
  3. ACICLOVIR [Concomitant]
     Active Substance: ACYCLOVIR
     Indication: ANTIVIRAL PROPHYLAXIS
     Dosage: UNK
     Route: 065
     Dates: start: 20180606, end: 20181204
  4. CYCLOSPORINE. [Suspect]
     Active Substance: CYCLOSPORINE
     Indication: GRAFT VERSUS HOST DISEASE
     Dosage: UNK
     Route: 065
     Dates: start: 20180726
  5. RUXOLITINIB [Suspect]
     Active Substance: RUXOLITINIB
     Indication: LEUKAEMIA
     Dosage: UNK
     Route: 048
     Dates: start: 20180718
  6. VALACICLOVIR HYDROCHLORIDE [Suspect]
     Active Substance: VALACYCLOVIR HYDROCHLORIDE
     Indication: PRODUCT USED FOR UNKNOWN INDICATION
     Dosage: UNK
     Route: 065
  7. GLASDEGIB [Suspect]
     Active Substance: GLASDEGIB
     Dosage: 50 MG, QD
     Route: 048
     Dates: start: 20190101, end: 20190108
  8. GLASDEGIB [Suspect]
     Active Substance: GLASDEGIB
     Indication: GRAFT VERSUS HOST DISEASE
     Dosage: 50 MG, QD
     Route: 048
     Dates: start: 20181126, end: 20181223
  9. PREDNISONE. [Concomitant]
     Active Substance: PREDNISONE
     Indication: GRAFT VERSUS HOST DISEASE
     Dosage: UNK
     Route: 065
     Dates: start: 20190101
  10. DASATINIB. [Suspect]
     Active Substance: DASATINIB
     Indication: LEUKAEMIA
     Dosage: UNK
     Route: 048
  11. VALGANCICLOVIR. [Concomitant]
     Active Substance: VALGANCICLOVIR
     Indication: CYTOMEGALOVIRUS INFECTION REACTIVATION
     Dosage: UNK
     Route: 065
     Dates: start: 20181208
  12. GLASDEGIB [Suspect]
     Active Substance: GLASDEGIB
     Dosage: 50 MG, QD
     Route: 048
     Dates: start: 20190118, end: 20190125
  13. DASATINIB. [Suspect]
     Active Substance: DASATINIB
     Dosage: UNK
     Route: 048
     Dates: start: 20160418

REACTIONS (1)
  - Hepatotoxicity [Recovered/Resolved]

NARRATIVE: CASE EVENT DATE: 20190226
